FAERS Safety Report 23964973 (Version 2)
Quarter: 2024Q2

REPORT INFORMATION
  Report Type: Spontaneous
  Country: US (occurrence: US)
  Receive Date: 20240612
  Receipt Date: 20240614
  Transmission Date: 20240716
  Serious: No
  Sender: FDA-Public Use
  Company Number: US-AMGEN-USASP2024114817

PATIENT
  Age: 41 Year
  Sex: Female

DRUGS (2)
  1. OTEZLA [Suspect]
     Active Substance: APREMILAST
     Indication: Psoriasis
     Dosage: STARTER PACK, FOLLOW PACKAGE INSTRUCTIONS
     Route: 048
     Dates: start: 20240507, end: 2024
  2. NOVOLOG [Concomitant]
     Active Substance: INSULIN ASPART
     Dosage: 100

REACTIONS (3)
  - Hypersensitivity [Unknown]
  - Mood swings [Unknown]
  - Epistaxis [Unknown]

NARRATIVE: CASE EVENT DATE: 20240101
